FAERS Safety Report 24137134 (Version 2)
Quarter: 2024Q3

REPORT INFORMATION
  Report Type: Spontaneous
  Country: US (occurrence: US)
  Receive Date: 20240725
  Receipt Date: 20240912
  Transmission Date: 20241017
  Serious: No
  Sender: ROCHE
  Company Number: US-ROCHE-10000032514

PATIENT
  Age: 22 Year
  Sex: Female

DRUGS (1)
  1. XOLAIR [Suspect]
     Active Substance: OMALIZUMAB
     Indication: Urticaria chronic
     Dosage: 150 MG/ML
     Route: 065
     Dates: start: 20230701

REACTIONS (2)
  - Intercepted product storage error [Unknown]
  - No adverse event [Unknown]
